FAERS Safety Report 19957490 (Version 2)
Quarter: 2021Q4

REPORT INFORMATION
  Report Type: Spontaneous
  Country: CA (occurrence: CA)
  Receive Date: 20211014
  Receipt Date: 20211022
  Transmission Date: 20220303
  Serious: Yes (Life-Threatening, Hospitalization)
  Sender: FDA-Public Use
  Company Number: CA-TEVA-2021-CA-1964459

PATIENT
  Age: 69 Year
  Sex: Male

DRUGS (11)
  1. MYCOPHENOLATE MOFETIL [Suspect]
     Active Substance: MYCOPHENOLATE MOFETIL
     Indication: Immunosuppressant drug therapy
     Dosage: 2 GRAM DAILY;
     Route: 048
  2. MYCOPHENOLATE MOFETIL [Suspect]
     Active Substance: MYCOPHENOLATE MOFETIL
     Indication: Immune-mediated myocarditis
  3. MYCOPHENOLATE MOFETIL [Suspect]
     Active Substance: MYCOPHENOLATE MOFETIL
     Indication: Immune-mediated myocarditis
  4. METHYLPREDNISOLONE [Suspect]
     Active Substance: METHYLPREDNISOLONE
     Indication: Immunosuppressant drug therapy
     Dosage: 125 MILLIGRAM DAILY;
     Route: 042
  5. METHYLPREDNISOLONE [Suspect]
     Active Substance: METHYLPREDNISOLONE
     Dosage: 1 GRAM DAILY; SUBSEQUENTLY ESCALATED TO A PULSE DOSE OF 1 G DAILY FOR 3 DAYS
     Route: 042
  6. PEMBROLIZUMAB [Suspect]
     Active Substance: PEMBROLIZUMAB
     Indication: Hormone-refractory prostate cancer
     Dosage: HE RECENTLY RECEIVED 2 CYCLES OF PEMBROLIZUMAB (200 MG PER CYCLE, INTRAVENOUSLY) 10 AND 4 WEEKS B...
     Route: 042
  7. PEMBROLIZUMAB [Suspect]
     Active Substance: PEMBROLIZUMAB
     Indication: Metastases to bone
  8. ABIRATERONE. [Concomitant]
     Active Substance: ABIRATERONE ACETATE
     Indication: Hormone-refractory prostate cancer
     Dosage: 1000 MILLIGRAM DAILY;
     Route: 065
  9. ABIRATERONE. [Concomitant]
     Active Substance: ABIRATERONE ACETATE
     Indication: Metastases to bone
  10. PREDNISONE [Concomitant]
     Active Substance: PREDNISONE
     Indication: Hormone-refractory prostate cancer
     Dosage: 10 MILLIGRAM DAILY;
     Route: 065
  11. PREDNISONE [Concomitant]
     Active Substance: PREDNISONE
     Indication: Metastases to bone

REACTIONS (17)
  - Immune-mediated hepatitis [Recovered/Resolved]
  - Immune-mediated myositis [Unknown]
  - Immune-mediated myocarditis [Recovering/Resolving]
  - Cardiogenic shock [Recovering/Resolving]
  - Accelerated idioventricular rhythm [Recovered/Resolved]
  - Oesophagitis [Unknown]
  - Gastritis [Unknown]
  - Gastric ulcer [Recovering/Resolving]
  - Duodenal ulcer [Recovering/Resolving]
  - Ventricular tachycardia [Recovered/Resolved]
  - Anaemia [Unknown]
  - Gastrointestinal haemorrhage [Unknown]
  - Gastrointestinal erosion [Unknown]
  - Somnolence [Unknown]
  - Respiratory failure [Unknown]
  - Cytomegalovirus viraemia [Unknown]
  - Drug ineffective [Unknown]
